FAERS Safety Report 23176665 (Version 6)
Quarter: 2024Q1

REPORT INFORMATION
  Report Type: Report from Study
  Country: US (occurrence: US)
  Receive Date: 20231113
  Receipt Date: 20240101
  Transmission Date: 20240410
  Serious: Yes (Hospitalization)
  Sender: FDA-Public Use
  Company Number: US-002147023-NVSC2023US241125

PATIENT
  Sex: Male

DRUGS (7)
  1. ENTRESTO [Suspect]
     Active Substance: SACUBITRIL\VALSARTAN
     Indication: Cardiac failure congestive
     Dosage: 24/26 MG, BID
     Route: 048
     Dates: start: 20231123
  2. ENTRESTO [Suspect]
     Active Substance: SACUBITRIL\VALSARTAN
     Dosage: 24/26 MG, UNKNOWN
     Route: 048
     Dates: start: 20230111
  3. AZITHROMYCIN [Suspect]
     Active Substance: AZITHROMYCIN
     Indication: Product used for unknown indication
     Dosage: UNK
     Route: 065
  4. JARDIANCE [Concomitant]
     Active Substance: EMPAGLIFLOZIN
     Indication: Cardiac failure congestive
     Dosage: 25 MG, UNKNOWN
     Route: 048
     Dates: start: 20231110
  5. CARVEDILOL [Concomitant]
     Active Substance: CARVEDILOL
     Indication: Cardiac failure congestive
     Dosage: 12.5 MG, UNKNOWN (BED)
     Route: 065
     Dates: start: 20231110
  6. FUROSEMIDE [Concomitant]
     Active Substance: FUROSEMIDE
     Indication: Cardiac failure congestive
     Dosage: 40 MG, QD (DAILY)
     Route: 048
     Dates: start: 20231110
  7. ATORVASTATIN [Concomitant]
     Active Substance: ATORVASTATIN
     Indication: Cardiac failure congestive
     Dosage: 40 MG, QD (DAILY)
     Route: 048
     Dates: start: 20231110

REACTIONS (7)
  - Blood electrolytes abnormal [Recovered/Resolved]
  - Hypoacusis [Unknown]
  - Diarrhoea [Recovered/Resolved]
  - Dehydration [Recovered/Resolved]
  - Blood cholesterol decreased [Unknown]
  - Blood glucose increased [Unknown]
  - Heart rate decreased [Unknown]
